FAERS Safety Report 8999212 (Version 1)
Quarter: 2013Q1

REPORT INFORMATION
  Report Type: Spontaneous
  Country: FR (occurrence: FR)
  Receive Date: 20130103
  Receipt Date: 20130103
  Transmission Date: 20140127
  Serious: Yes (Hospitalization)
  Sender: FDA-Public Use
  Company Number: FR-JNJFOC-20130100630

PATIENT
  Age: 76 Year
  Sex: Male

DRUGS (6)
  1. XARELTO [Suspect]
     Indication: PRODUCT USED FOR UNKNOWN INDICATION
     Route: 048
     Dates: end: 20121108
  2. KARDEGIC [Suspect]
     Indication: ISCHAEMIC HEART DISEASE PROPHYLAXIS
     Route: 048
     Dates: end: 20121108
  3. XALATAN [Concomitant]
     Route: 065
  4. DETENSIEL [Concomitant]
     Route: 065
  5. CRESTOR [Concomitant]
     Route: 065
  6. ZESTRIL [Concomitant]
     Route: 065

REACTIONS (1)
  - Activated partial thromboplastin time prolonged [Recovered/Resolved]
